FAERS Safety Report 8158399-9 (Version None)
Quarter: 2012Q1

REPORT INFORMATION
  Report Type: 
  Country: None (occurrence: None)
  Receive Date: 20120223
  Receipt Date: 20120215
  Transmission Date: 20120608
  Serious: Yes (Hospitalization, Other)
  Sender: FDA-Public Use
  Company Number: US-BAYER-201037259NA

PATIENT
  Age: 47 Year
  Sex: Female
  Weight: 60 kg

DRUGS (5)
  1. YASMIN [Suspect]
     Indication: PREMENSTRUAL SYNDROME
  2. YASMIN [Suspect]
     Indication: ORAL CONTRACEPTION
     Route: 048
  3. YASMIN [Suspect]
     Indication: MENOPAUSE
  4. YASMIN [Suspect]
     Indication: MENORRHAGIA
  5. YASMIN [Suspect]
     Indication: DYSMENORRHOEA

REACTIONS (2)
  - PULMONARY EMBOLISM [None]
  - UTERINE HAEMORRHAGE [None]
